FAERS Safety Report 17452578 (Version 2)
Quarter: 2020Q3

REPORT INFORMATION
  Report Type: Report from Study
  Country: US (occurrence: US)
  Receive Date: 20200224
  Receipt Date: 20200812
  Transmission Date: 20201102
  Serious: No
  Sender: FDA-Public Use
  Company Number: NVSC2020US048906

PATIENT
  Age: 87 Year
  Sex: Female

DRUGS (1)
  1. BEOVU [Suspect]
     Active Substance: BROLUCIZUMAB-DBLL
     Indication: NEOVASCULAR AGE-RELATED MACULAR DEGENERATION
     Dosage: UNK
     Route: 047
     Dates: start: 20191126

REACTIONS (3)
  - Lacrimation increased [Unknown]
  - Rhinorrhoea [Unknown]
  - Visual impairment [Unknown]

NARRATIVE: CASE EVENT DATE: 20200219
